FAERS Safety Report 6999291-2 (Version None)
Quarter: 2010Q3

REPORT INFORMATION
  Report Type: 
  Country: None (occurrence: None)
  Receive Date: 20100920
  Receipt Date: 20100706
  Transmission Date: 20110219
  Serious: No
  Sender: FDA-Public Use
  Company Number: US-ASTRAZENECA-2010SE31248

PATIENT
  Age: 58 Year
  Sex: Female
  Weight: 72.6 kg

DRUGS (2)
  1. SEROQUEL XR [Suspect]
     Indication: DELUSIONAL DISORDER, UNSPECIFIED TYPE
     Route: 048
     Dates: start: 20100201
  2. SEROQUEL XR [Suspect]
     Route: 048

REACTIONS (2)
  - LAZINESS [None]
  - WEIGHT INCREASED [None]
